FAERS Safety Report 9288632 (Version 2)
Quarter: 2013Q3

REPORT INFORMATION
  Report Type: Report from Study
  Country: AR (occurrence: AR)
  Receive Date: 20130514
  Receipt Date: 20130725
  Transmission Date: 20140515
  Serious: No
  Sender: FDA-Public Use
  Company Number: PHHY2013AR046933

PATIENT
  Sex: Female

DRUGS (6)
  1. DIOVAN D [Suspect]
     Indication: HYPERTENSION
     Dosage: 1 DF, (160/25 MG) DAILY
     Route: 048
  2. GALVUS MET [Concomitant]
     Indication: DIABETES MELLITUS
     Dosage: 1 DF, (1000/50 MG) DAILY
     Route: 048
     Dates: start: 201304
  3. SINTROM [Concomitant]
     Indication: ARRHYTHMIA
     Dosage: UNK UKN, UNK
     Route: 048
  4. SINTROM [Concomitant]
     Dosage: 0.5 DF, ON MONDAYS, WEDNESDAYS AND FRIDAYS
     Route: 048
  5. SINTROM [Concomitant]
     Dosage: 0.75 DF, ON TUESDAYS AND THURSDAYS
     Route: 048
  6. METFORMIN [Concomitant]
     Dosage: UNK UKN, UNK
     Dates: end: 201304

REACTIONS (2)
  - Arrhythmia [Recovering/Resolving]
  - Weight decreased [Unknown]
